FAERS Safety Report 11622712 (Version 1)
Quarter: 2015Q4

REPORT INFORMATION
  Report Type: Spontaneous
  Country: US (occurrence: None)
  Receive Date: 20151009
  Receipt Date: 20151009
  Transmission Date: 20160304
  Serious: Yes (Life-Threatening, Disabling)
  Sender: FDA-Public Use
  Company Number: None

PATIENT
  Age: 23 Year
  Sex: Female
  Weight: 70.31 kg

DRUGS (3)
  1. CONCERTA [Concomitant]
     Active Substance: METHYLPHENIDATE HYDROCHLORIDE
  2. NUBAIN [Suspect]
     Active Substance: NALBUPHINE HYDROCHLORIDE
     Indication: LABOUR PAIN
     Route: 042
  3. INTUNIV [Concomitant]
     Active Substance: GUANFACINE HYDROCHLORIDE

REACTIONS (10)
  - Foetal distress syndrome [None]
  - Autism [None]
  - Vacuum extractor delivery [None]
  - Listless [None]
  - Maternal drugs affecting foetus [None]
  - Foetal heart rate deceleration abnormality [None]
  - Pyrexia [None]
  - Respiratory disorder neonatal [None]
  - Skin discolouration [None]
  - Meconium in amniotic fluid [None]

NARRATIVE: CASE EVENT DATE: 20070601
